FAERS Safety Report 6686052-7 (Version None)
Quarter: 2010Q2

REPORT INFORMATION
  Report Type: 
  Country: None (occurrence: None)
  Receive Date: 20100414
  Receipt Date: 20100331
  Transmission Date: 20101027
  Serious: Yes (Hospitalization)
  Sender: FDA-Public Use
  Company Number: 2010AL000077

PATIENT
  Age: 65 Year
  Sex: Female
  Weight: 65.5 kg

DRUGS (11)
  1. PRALATREXATE              (PRALATREXATE) [Suspect]
     Indication: HODGKIN'S DISEASE
     Dosage: 16 MG;QOW;IV
     Route: 042
     Dates: start: 20100119, end: 20100316
  2. GEMCITABINE [Suspect]
     Dosage: 680 MG;QOW;IV
     Route: 042
     Dates: start: 20100120, end: 20100316
  3. DULOXETINE HYDROCHLORIDE [Concomitant]
  4. FOLIC ACID [Concomitant]
  5. HERPARIN [Concomitant]
  6. PRAMIPEXOLE DIHYDROCHLORIDE [Concomitant]
  7. ACETAMINOPHEN [Concomitant]
  8. HYDROXYZINE [Concomitant]
  9. LORAXEPAM [Concomitant]
  10. ONDANSETRON [Concomitant]
  11. PROCHLORPERAZINE [Concomitant]

REACTIONS (6)
  - BLOOD CHLORIDE DECREASED [None]
  - BLOOD SODIUM DECREASED [None]
  - DYSPNOEA [None]
  - HAEMATOCRIT DECREASED [None]
  - HAEMOGLOBIN DECREASED [None]
  - LUNG INFILTRATION [None]
